FAERS Safety Report 24887788 (Version 1)
Quarter: 2025Q1

REPORT INFORMATION
  Report Type: Spontaneous
  Country: CN (occurrence: CN)
  Receive Date: 20250127
  Receipt Date: 20250127
  Transmission Date: 20250408
  Serious: Yes (Life-Threatening, Hospitalization, Other)
  Sender: ABBVIE
  Company Number: CN-PFIZER INC-PV202500009178

PATIENT
  Age: 55 Year
  Sex: Male

DRUGS (1)
  1. AVIBACTAM SODIUM [Suspect]
     Active Substance: AVIBACTAM SODIUM
     Indication: Product used for unknown indication
     Route: 065
     Dates: start: 20250119

REACTIONS (1)
  - Coma [Unknown]

NARRATIVE: CASE EVENT DATE: 20250101
